FAERS Safety Report 9379898 (Version 1)
Quarter: 2013Q3

REPORT INFORMATION
  Report Type: Report from Study
  Country: US (occurrence: US)
  Receive Date: 20130702
  Receipt Date: 20130702
  Transmission Date: 20140515
  Serious: Yes (Hospitalization)
  Sender: FDA-Public Use
  Company Number: US-PFIZER INC-2013193148

PATIENT
  Age: 71 Year
  Sex: Female

DRUGS (20)
  1. DOXORUBICIN HCL [Suspect]
     Indication: SARCOMA
     Dosage: 75MG/M2/106 MG/BOLUS/ CYCLE 1, THERAPY DURATION: 1DAY
     Route: 040
     Dates: start: 20121213, end: 20121213
  2. PALONOSETRON [Concomitant]
     Dosage: UNK
     Dates: start: 20121213
  3. DEXAMETHASONE [Concomitant]
     Dosage: UNK
     Dates: start: 20121213
  4. FOSAPREPITANT [Concomitant]
     Dosage: UNK
     Dates: start: 20121213
  5. ADVIL [Concomitant]
     Dosage: UNK
     Dates: start: 20120322
  6. ALPRAZOLAM [Concomitant]
     Dosage: UNK
     Dates: start: 20120920
  7. CIPROFLOXACIN [Concomitant]
     Dosage: UNK
     Dates: start: 20121223
  8. VITAMIN D [Concomitant]
     Dosage: UNK
     Dates: start: 20120322
  9. VITAMIN C [Concomitant]
     Dosage: UNK
     Dates: start: 20120322
  10. PRESERVISION (VISION TABLETS) [Concomitant]
     Dosage: UNK
     Dates: start: 20111102
  11. PROCHLORPERAZINE MALEATE [Concomitant]
     Dosage: UNK
  12. STOOL SOFTENER [Concomitant]
     Dosage: UNK
     Dates: start: 20121206
  13. CLARITIN [Concomitant]
     Dosage: UNK
     Dates: start: 20111102
  14. FISH OIL [Concomitant]
     Dosage: UNK
     Dates: start: 20120621
  15. GABAPENTIN [Concomitant]
     Dosage: UNK
     Dates: start: 20121121
  16. IBUPROFEN [Concomitant]
     Dosage: UNK
     Dates: start: 20121121
  17. LIDCAINE/PRILOCAINE [Concomitant]
     Dosage: UNK
     Dates: start: 20121206
  18. LORAZEPAM [Concomitant]
     Dosage: UNK
     Dates: start: 20121213
  19. OXYCODONE [Concomitant]
     Dosage: UNK
     Dates: start: 20121127
  20. OXYCONTIN [Concomitant]
     Dosage: UNK
     Dates: start: 20121206

REACTIONS (2)
  - Febrile neutropenia [Recovered/Resolved]
  - Hypotension [Recovered/Resolved]
